FAERS Safety Report 4531667-5 (Version None)
Quarter: 2004Q4

REPORT INFORMATION
  Report Type: 
  Country: None (occurrence: None)
  Receive Date: 20041216
  Receipt Date: 20041209
  Transmission Date: 20050328
  Serious: Yes (Death)
  Sender: FDA-Public Use
  Company Number: 211007

PATIENT

DRUGS (1)
  1. ACTIVASE [Suspect]
     Indication: THROMBOSIS
     Dates: start: 20041124, end: 20041124

REACTIONS (1)
  - DEATH [None]
